FAERS Safety Report 12069238 (Version 1)
Quarter: 2016Q1

REPORT INFORMATION
  Report Type: Spontaneous
  Country: JP (occurrence: JP)
  Receive Date: 20160211
  Receipt Date: 20160211
  Transmission Date: 20160526
  Serious: Yes (Other)
  Sender: FDA-Public Use
  Company Number: JP-PFIZER INC-2015291778

PATIENT
  Age: 75 Year
  Sex: Male

DRUGS (6)
  1. TOVIAZ [Suspect]
     Active Substance: FESOTERODINE FUMARATE
     Dosage: 4 MG, DAILY
     Route: 048
     Dates: start: 201405
  2. TOVIAZ [Suspect]
     Active Substance: FESOTERODINE FUMARATE
     Dosage: 8 MG, DAILY
     Route: 048
  3. TEPRENONE [Concomitant]
     Active Substance: TEPRENONE
     Route: 048
  4. AVOLVE [Concomitant]
     Active Substance: DUTASTERIDE
  5. ZALUTIA [Concomitant]
     Active Substance: TADALAFIL
     Route: 048
  6. URIEF [Concomitant]
     Active Substance: SILODOSIN
     Route: 048

REACTIONS (1)
  - Internal haemorrhage [Unknown]
